FAERS Safety Report 23562804 (Version 1)
Quarter: 2024Q1

REPORT INFORMATION
  Report Type: Spontaneous
  Country: US (occurrence: US)
  Receive Date: 20240226
  Receipt Date: 20240226
  Transmission Date: 20240410
  Serious: No
  Sender: FDA-Public Use
  Company Number: US-SA-SAC20240219000347

PATIENT
  Sex: Male
  Weight: 107 kg

DRUGS (2)
  1. DUPIXENT [Suspect]
     Active Substance: DUPILUMAB
     Dosage: 300 MG QOW
     Route: 058
  2. ABIRATERONE [Suspect]
     Active Substance: ABIRATERONE
     Dosage: UNK

REACTIONS (1)
  - Dizziness [Not Recovered/Not Resolved]
